FAERS Safety Report 4747574-9 (Version None)
Quarter: 2005Q3

REPORT INFORMATION
  Report Type: 
  Country: None (occurrence: None)
  Receive Date: 20050818
  Receipt Date: 20040923
  Transmission Date: 20060218
  Serious: No
  Sender: FDA-Public Use
  Company Number: US-BRISTOL-MYERS SQUIBB COMPANY-12710877

PATIENT
  Age: 61 Year
  Sex: Female
  Weight: 70 kg

DRUGS (5)
  1. TEQUIN [Suspect]
     Indication: BRONCHITIS
     Route: 048
     Dates: start: 20040923
  2. LIPITOR [Concomitant]
  3. MULTI-VITAMIN [Concomitant]
  4. GLUCOSAMINE [Concomitant]
  5. IBUPROFEN [Concomitant]

REACTIONS (1)
  - BREAST PAIN [None]
